FAERS Safety Report 7304153-7 (Version None)
Quarter: 2011Q1

REPORT INFORMATION
  Report Type: 
  Country: None (occurrence: None)
  Receive Date: 20110221
  Receipt Date: 20110206
  Transmission Date: 20110831
  Serious: Yes (Death)
  Sender: FDA-Public Use
  Company Number: FR-BAUSCH-2011BL000893

PATIENT
  Age: 42 Day
  Sex: Female

DRUGS (1)
  1. ATROPINE [Suspect]
     Indication: OPHTHALMOLOGICAL EXAMINATION
     Route: 047

REACTIONS (1)
  - NECROTISING COLITIS [None]
